FAERS Safety Report 14554560 (Version 1)
Quarter: 2018Q1

REPORT INFORMATION
  Report Type: Spontaneous
  Country: US (occurrence: US)
  Receive Date: 20180218
  Receipt Date: 20180218
  Transmission Date: 20180509
  Serious: Yes (Disabling)
  Sender: FDA-Public Use
  Company Number: None

PATIENT
  Sex: Male
  Weight: 101.25 kg

DRUGS (3)
  1. NORVASC [Concomitant]
     Active Substance: AMLODIPINE BESYLATE
  2. TRIATAMERENE/HCTZ C-PAP [Concomitant]
  3. LARIAM [Suspect]
     Active Substance: MEFLOQUINE HYDROCHLORIDE
     Indication: DRUG THERAPY
     Dosage: ?          OTHER FREQUENCY:WEEKLY;?
     Route: 048
     Dates: start: 19970423, end: 19970625

REACTIONS (10)
  - Cognitive disorder [None]
  - Amnesia [None]
  - Visual impairment [None]
  - Deafness neurosensory [None]
  - Depression [None]
  - Anxiety [None]
  - Panic disorder [None]
  - Tinnitus [None]
  - Vertigo [None]
  - Social anxiety disorder [None]

NARRATIVE: CASE EVENT DATE: 19970425
